FAERS Safety Report 7712881-4 (Version None)
Quarter: 2011Q3

REPORT INFORMATION
  Report Type: 
  Country: None (occurrence: None)
  Receive Date: 20110826
  Receipt Date: 20110815
  Transmission Date: 20111222
  Serious: Yes (Hospitalization)
  Sender: FDA-Public Use
  Company Number: PHHY2011DE47070

PATIENT
  Sex: Male

DRUGS (2)
  1. EXFORGE [Suspect]
  2. RASILEZ [Suspect]
     Dosage: 1 DF, QD
     Dates: start: 20110101, end: 20110401

REACTIONS (2)
  - PARAESTHESIA [None]
  - OEDEMA PERIPHERAL [None]
